FAERS Safety Report 6683919-0 (Version None)
Quarter: 2010Q2

REPORT INFORMATION
  Report Type: 
  Country: None (occurrence: None)
  Receive Date: 20100416
  Receipt Date: 20100406
  Transmission Date: 20101027
  Serious: Yes (Other)
  Sender: FDA-Public Use
  Company Number: DK-PFIZER INC-2010038160

PATIENT
  Age: 56 Year
  Sex: Female
  Weight: 66 kg

DRUGS (3)
  1. LOPID [Suspect]
     Indication: HYPERCHOLESTEROLAEMIA
     Dosage: 600 MG, 2X/DAY
     Route: 048
     Dates: start: 20070115, end: 20080401
  2. OLBETAM [Concomitant]
     Dosage: 250 MG, 3X/DAY
     Dates: start: 20061110
  3. ELTROXIN [Concomitant]
     Dosage: 50 MG, 2X/DAY
     Dates: start: 20070329

REACTIONS (4)
  - ARTHRALGIA [None]
  - BONE PAIN [None]
  - MUSCULAR WEAKNESS [None]
  - MYALGIA [None]
